FAERS Safety Report 10611488 (Version 3)
Quarter: 2015Q3

REPORT INFORMATION
  Report Type: Spontaneous
  Country: US (occurrence: US)
  Receive Date: 20141126
  Receipt Date: 20150803
  Transmission Date: 20151125
  Serious: No
  Sender: FDA-Public Use
  Company Number: US-PFIZER INC-2014323634

PATIENT
  Age: 64 Year
  Sex: Female

DRUGS (7)
  1. TYVASO [Concomitant]
     Active Substance: TREPROSTINIL
     Dosage: UNK, 4X/DAY (9 BREATHS 4 TIMES A DAY)
     Dates: start: 20121023
  2. TYVASO [Concomitant]
     Active Substance: TREPROSTINIL
     Indication: PULMONARY HYPERTENSION
     Dosage: UNK, 4X/DAY (3-4 INHALES )
  3. NORVASC [Suspect]
     Active Substance: AMLODIPINE BESYLATE
     Indication: PULMONARY HYPERTENSION
  4. NORVASC [Suspect]
     Active Substance: AMLODIPINE BESYLATE
     Indication: RAYNAUD^S PHENOMENON
     Dosage: 5 MG, DAILY
     Route: 048
     Dates: start: 20130516, end: 20130610
  5. HYDROCHLOROTHIAZIDE. [Concomitant]
     Active Substance: HYDROCHLOROTHIAZIDE
     Dosage: 25 MG, DAILY
     Dates: end: 201310
  6. CELLCEPT [Concomitant]
     Active Substance: MYCOPHENOLATE MOFETIL\MYCOPHENOLATE MOFETIL HYDROCHLORIDE
     Dosage: 1000 MG, 2X/DAY
  7. REVATIO [Concomitant]
     Active Substance: SILDENAFIL CITRATE
     Indication: PULMONARY HYPERTENSION
     Dosage: 20 MG, 3X/DAY
     Dates: end: 201503

REACTIONS (4)
  - Joint swelling [Recovered/Resolved]
  - Drug hypersensitivity [Unknown]
  - Weight increased [Recovered/Resolved]
  - Product use issue [Unknown]

NARRATIVE: CASE EVENT DATE: 20130516
